FAERS Safety Report 19151697 (Version 3)
Quarter: 2021Q3

REPORT INFORMATION
  Report Type: Spontaneous
  Country: US (occurrence: US)
  Receive Date: 20210419
  Receipt Date: 20210805
  Transmission Date: 20211014
  Serious: Yes (Other)
  Sender: FDA-Public Use
  Company Number: US-JNJFOC-20210423948

PATIENT
  Age: 37 Year
  Sex: Female

DRUGS (15)
  1. GABAPENTIN. [Concomitant]
     Active Substance: GABAPENTIN
     Indication: MIGRAINE
  2. TIZANIDINE [TIZANIDINE HYDROCHLORIDE] [Concomitant]
     Active Substance: TIZANIDINE HYDROCHLORIDE
     Indication: HYPOTONIA
     Route: 065
     Dates: start: 1996
  3. ELMIRON [Suspect]
     Active Substance: PENTOSAN POLYSULFATE SODIUM
     Indication: CYSTITIS INTERSTITIAL
     Route: 048
     Dates: start: 2006, end: 2015
  4. ELMIRON [Suspect]
     Active Substance: PENTOSAN POLYSULFATE SODIUM
     Indication: BLOOD URINE PRESENT
     Route: 048
     Dates: start: 20040101, end: 20160101
  5. FENTANYL. [Concomitant]
     Active Substance: FENTANYL
     Indication: CYSTITIS INTERSTITIAL
     Route: 065
     Dates: start: 2004
  6. ALPRAZOLAM. [Concomitant]
     Active Substance: ALPRAZOLAM
     Indication: ANXIETY
     Route: 065
     Dates: start: 2018
  7. PROMETHAZINE [Concomitant]
     Active Substance: PROMETHAZINE HYDROCHLORIDE
     Indication: NAUSEA
     Route: 065
     Dates: start: 1996
  8. SYNTHROID [Concomitant]
     Active Substance: LEVOTHYROXINE SODIUM
     Indication: HYPOTHYROIDISM
     Route: 065
     Dates: start: 1990
  9. AMITRIPTYLINE [Concomitant]
     Active Substance: AMITRIPTYLINE
     Indication: CYSTITIS INTERSTITIAL
     Route: 065
     Dates: start: 2004
  10. ELMIRON [Suspect]
     Active Substance: PENTOSAN POLYSULFATE SODIUM
     Indication: BLADDER PAIN
  11. FENTANYL. [Concomitant]
     Active Substance: FENTANYL
     Indication: MIGRAINE
  12. OXYCODONE [Concomitant]
     Active Substance: OXYCODONE
     Indication: CYSTITIS INTERSTITIAL
     Dates: start: 2004
  13. GABAPENTIN. [Concomitant]
     Active Substance: GABAPENTIN
     Indication: CYSTITIS INTERSTITIAL
     Route: 065
     Dates: start: 2004
  14. FLUOXETINE [Concomitant]
     Active Substance: FLUOXETINE HYDROCHLORIDE
     Indication: STRESS
     Route: 065
     Dates: start: 2008, end: 2018
  15. PAROXETINE. [Concomitant]
     Active Substance: PAROXETINE
     Indication: STRESS
     Dates: start: 2018

REACTIONS (4)
  - Retinopathy [Unknown]
  - Incorrect dose administered [Unknown]
  - Dry age-related macular degeneration [Not Recovered/Not Resolved]
  - Off label use [Unknown]

NARRATIVE: CASE EVENT DATE: 20040101
